FAERS Safety Report 9913492 (Version 1)
Quarter: 2014Q1

REPORT INFORMATION
  Report Type: Spontaneous
  Country: US (occurrence: US)
  Receive Date: 20140220
  Receipt Date: 20140220
  Transmission Date: 20141002
  Serious: No
  Sender: FDA-Public Use
  Company Number: US-B.I. PHARMACEUTICALS,INC./RIDGEFIELD-2014-BI-06582BP

PATIENT
  Sex: Male

DRUGS (13)
  1. COMBIVENT [Suspect]
     Indication: CHRONIC OBSTRUCTIVE PULMONARY DISEASE
     Dosage: STRENGTH: 20 MCG / 100 MCG; DAILY DOSE: 80 MCG/ 400 MCG
     Route: 055
  2. RIFAMPIN [Concomitant]
     Route: 048
  3. MULTIVITAMIN [Concomitant]
     Route: 048
  4. CLARITHROMYCIN [Concomitant]
     Route: 048
  5. METOPROLOL [Concomitant]
     Route: 048
  6. LOSARTAN [Concomitant]
     Route: 048
  7. FUROSEMIDE [Concomitant]
     Route: 048
  8. SPIRIVA [Concomitant]
     Dosage: 18 MCG
     Route: 055
  9. SPRIONOLACTONE [Concomitant]
     Route: 048
  10. OMEPRAZOLE [Concomitant]
     Route: 048
  11. FOLIC ACID [Concomitant]
     Route: 048
  12. ETHAMBUTOL [Concomitant]
     Route: 048
  13. DULARA [Concomitant]
     Route: 055

REACTIONS (1)
  - Drug ineffective [Not Recovered/Not Resolved]
